FAERS Safety Report 7001160-9 (Version None)
Quarter: 2010Q3

REPORT INFORMATION
  Report Type: 
  Country: None (occurrence: None)
  Receive Date: 20100920
  Receipt Date: 20100430
  Transmission Date: 20110219
  Serious: Yes (Other)
  Sender: FDA-Public Use
  Company Number: US-ASTRAZENECA-2007UW12867

PATIENT
  Age: 15309 Day
  Sex: Female
  Weight: 88.5 kg

DRUGS (6)
  1. SEROQUEL [Suspect]
     Indication: SCHIZOPHRENIA
     Dosage: 100 MG TO 300 MG
     Route: 048
     Dates: start: 20050101, end: 20070401
  2. SOMA [Concomitant]
     Dates: start: 20021124
  3. XANAX [Concomitant]
     Dates: start: 20021124
  4. PHENERGAN [Concomitant]
     Dates: start: 20021124
  5. METHADONE HCL [Concomitant]
     Dates: start: 20021124
  6. KLONOPIN [Concomitant]
     Dates: start: 20070506

REACTIONS (1)
  - PANCREATITIS ACUTE [None]
